FAERS Safety Report 5649796-1 (Version None)
Quarter: 2008Q1

REPORT INFORMATION
  Report Type: 
  Country: None (occurrence: None)
  Receive Date: 20080303
  Receipt Date: 20080220
  Transmission Date: 20080703
  Serious: Yes (Hospitalization, Other)
  Sender: FDA-Public Use
  Company Number: 2008SP001938

PATIENT
  Age: 61 Year
  Sex: Male
  Weight: 63.18 kg

DRUGS (3)
  1. TEMODAR [Suspect]
     Indication: GLIOBLASTOMA MULTIFORME
     Dosage: 140 MG; QD; PO; 180 MG; QD; PO; 135 MG; QD; PO
     Route: 048
     Dates: end: 20071226
  2. TEMODAR [Suspect]
     Indication: GLIOBLASTOMA MULTIFORME
     Dosage: 140 MG; QD; PO; 180 MG; QD; PO; 135 MG; QD; PO
     Route: 048
     Dates: start: 20071227, end: 20080113
  3. TEMODAR [Suspect]
     Indication: GLIOBLASTOMA MULTIFORME
     Dosage: 140 MG; QD; PO; 180 MG; QD; PO; 135 MG; QD; PO
     Route: 048
     Dates: start: 20070614

REACTIONS (6)
  - ASTHENIA [None]
  - FALL [None]
  - FATIGUE [None]
  - HEADACHE [None]
  - MENTAL STATUS CHANGES [None]
  - MUSCULAR WEAKNESS [None]
